FAERS Safety Report 13333390 (Version 1)
Quarter: 2017Q1

REPORT INFORMATION
  Report Type: Spontaneous
  Country: US (occurrence: US)
  Receive Date: 20170313
  Receipt Date: 20170313
  Transmission Date: 20170428
  Serious: Yes (Other)
  Sender: FDA-Public Use
  Company Number: US-PFIZER INC-2017099890

PATIENT
  Age: 81 Year
  Sex: Female

DRUGS (1)
  1. IBRANCE [Suspect]
     Active Substance: PALBOCICLIB
     Dosage: UNK
     Dates: start: 20170223

REACTIONS (5)
  - Insomnia [Unknown]
  - Contusion [Unknown]
  - Diarrhoea [Unknown]
  - Haemorrhage [Unknown]
  - Nausea [Unknown]
